FAERS Safety Report 12242925 (Version 1)
Quarter: 2016Q2

REPORT INFORMATION
  Report Type: Spontaneous
  Country: MX (occurrence: MX)
  Receive Date: 20160406
  Receipt Date: 20160406
  Transmission Date: 20160815
  Serious: Yes (Hospitalization, Other)
  Sender: FDA-Public Use
  Company Number: MX-SA-2016SA065852

PATIENT
  Age: 86 Year
  Sex: Female
  Weight: 85 kg

DRUGS (3)
  1. APROVASC [Suspect]
     Active Substance: AMLODIPINE BESYLATE\IRBESARTAN
     Indication: HYPERTENSION
     Dosage: 150 MG OF IRBESARTAN + 5 MG OF AMLODIPINE
     Route: 048
     Dates: start: 2011
  2. PLAVIX [Suspect]
     Active Substance: CLOPIDOGREL BISULFATE
     Indication: PROPHYLAXIS
     Route: 048
     Dates: start: 2011
  3. LANTUS [Suspect]
     Active Substance: INSULIN GLARGINE
     Indication: TYPE 2 DIABETES MELLITUS
     Dosage: DOSAGE FORM :VIAL
     Route: 058
     Dates: start: 2011

REACTIONS (3)
  - Pneumonia [Recovered/Resolved]
  - Hypertension [Recovered/Resolved]
  - Hyperglycaemia [Recovered/Resolved]

NARRATIVE: CASE EVENT DATE: 20160222
